FAERS Safety Report 6537714-3 (Version None)
Quarter: 2009Q4

REPORT INFORMATION
  Report Type: 
  Country: None (occurrence: None)
  Receive Date: 20091229
  Receipt Date: 20091016
  Transmission Date: 20100525
  Serious: No
  Sender: FDA-Public Use
  Company Number: 1000009500

PATIENT
  Age: 76 Year
  Sex: Female

DRUGS (7)
  1. BYSTOLIC [Suspect]
     Indication: HYPERTENSION
     Dosage: 2.5 MG (2.5 MG, 1 IN 1 D),ORAL
     Route: 048
     Dates: start: 20091014
  2. ALTACE [Concomitant]
  3. INDAPAMIDE [Concomitant]
  4. POTASSIUM [Concomitant]
  5. MULTI-VITAMIN [Concomitant]
  6. CLONIDINE [Concomitant]
  7. LORAZEPAM [Concomitant]

REACTIONS (7)
  - BLOOD PRESSURE [None]
  - DIZZINESS [None]
  - FATIGUE [None]
  - HEADACHE [None]
  - MUSCLE SPASMS [None]
  - NAUSEA [None]
  - SOMNOLENCE [None]
